FAERS Safety Report 6463918-4 (Version None)
Quarter: 2009Q4

REPORT INFORMATION
  Report Type: 
  Country: None (occurrence: None)
  Receive Date: 20091201
  Receipt Date: 20091118
  Transmission Date: 20100525
  Serious: Yes (Other)
  Sender: FDA-Public Use
  Company Number: US-JNJFOC-20091106027

PATIENT
  Sex: Female
  Weight: 79.83 kg

DRUGS (6)
  1. DURAGESIC-100 [Suspect]
     Indication: BACK PAIN
     Route: 062
     Dates: start: 20010101, end: 20091001
  2. DURAGESIC-100 [Suspect]
     Route: 062
     Dates: start: 20091001
  3. CELEBREX [Suspect]
     Indication: ARTHRITIS
     Route: 048
     Dates: end: 20090101
  4. CYMBALTA [Concomitant]
     Indication: DEPRESSION
     Route: 048
  5. UNKNOWN MEDICATION [Concomitant]
     Indication: DEPRESSION
     Route: 048
     Dates: end: 20090701
  6. NORCO [Concomitant]
     Indication: BREAKTHROUGH PAIN
     Dosage: 5/325 MG
     Route: 048

REACTIONS (10)
  - ARTHRITIS [None]
  - BACK PAIN [None]
  - FEELING ABNORMAL [None]
  - HYPOKINESIA [None]
  - NERVOUSNESS [None]
  - PRODUCT ADHESION ISSUE [None]
  - PRODUCT QUALITY ISSUE [None]
  - TENSION [None]
  - TREATMENT NONCOMPLIANCE [None]
  - WITHDRAWAL SYNDROME [None]
